FAERS Safety Report 19466430 (Version 3)
Quarter: 2025Q4

REPORT INFORMATION
  Report Type: Spontaneous
  Country: US (occurrence: None)
  Receive Date: 20210628
  Receipt Date: 20251215
  Transmission Date: 20260118
  Serious: Yes (Hospitalization, Other)
  Sender: AUROBINDO
  Company Number: US-AUROBINDO-AUR-APL-2021-026163

PATIENT
  Age: 17 Year
  Sex: Male

DRUGS (15)
  1. PSEUDOEPHEDRINE [Suspect]
     Active Substance: PSEUDOEPHEDRINE
     Indication: Priapism
     Dosage: 60 MILLIGRAM, FOUR TIMES/DAY
     Route: 065
  2. epoetin  5 [Concomitant]
     Indication: Product used for unknown indication
     Dosage: 120 U/KG PER WEEK
     Route: 065
  3. epoetin  5 [Concomitant]
     Dosage: 1900U ON THE DAY (33 U/KG/DOSE, 80% OF THE PREVIOUS DOSE)
     Route: 065
  4. sodium ferric gluconate  5 [Concomitant]
     Indication: Product used for unknown indication
     Dosage: 125 MILLIGRAM EVERY OTHER WEEK
     Route: 065
  5. HEPARIN [Concomitant]
     Active Substance: HEPARIN SODIUM
     Indication: Product used for unknown indication
     Dosage: 1,300 U (22.8 U/KG) LOAD AND 1,300 U/H CONTINUOUS INFUSION
     Route: 065
  6. calcitriol  5 [Concomitant]
     Indication: Product used for unknown indication
     Dosage: 0.2 MICROGRAM, EVERY WEEK
     Route: 065
  7. phenylephrine  5 [Concomitant]
     Indication: Product used for unknown indication
     Dosage: TOTAL DOSE 500 ?G, DIVIDED 300 AND 200 ?G
     Route: 065
  8. AMLODIPINE [Concomitant]
     Active Substance: AMLODIPINE BESYLATE
     Indication: Anxiety
     Dosage: 10 MILLIGRAM, TWO TIMES A DAY
     Route: 065
  9. AMLODIPINE [Concomitant]
     Active Substance: AMLODIPINE BESYLATE
     Indication: Hypertension
  10. LISINOPRIL [Concomitant]
     Active Substance: LISINOPRIL
     Indication: Hypertension
     Dosage: 30 MILLIGRAM, DAILY
     Route: 061
  11. LISINOPRIL [Concomitant]
     Active Substance: LISINOPRIL
     Indication: Anxiety
  12. METOPROLOL [Concomitant]
     Active Substance: METOPROLOL
     Indication: Hypertension
     Dosage: 25 MILLIGRAM, ONCE A DAY (AT NIGHT)
     Route: 065
  13. METOPROLOL [Concomitant]
     Active Substance: METOPROLOL
     Indication: Anxiety
  14. RANITIDINE [Concomitant]
     Active Substance: RANITIDINE
     Indication: Product used for unknown indication
     Dosage: 75 MILLIGRAM, DAILY
     Route: 065
  15. SEVELAMER [Concomitant]
     Active Substance: SEVELAMER
     Indication: Product used for unknown indication
     Dosage: UNK
     Route: 065

REACTIONS (11)
  - Hallucination [Recovered/Resolved]
  - Anxiety [Recovering/Resolving]
  - Dyspnoea [Recovering/Resolving]
  - Pressure of speech [Recovering/Resolving]
  - Pain in jaw [Recovered/Resolved]
  - Paraesthesia [Recovering/Resolving]
  - Swollen tongue [Recovering/Resolving]
  - Feeling abnormal [Recovering/Resolving]
  - Blood pressure increased [Recovering/Resolving]
  - Product use in unapproved indication [Unknown]
  - Toxicity to various agents [Unknown]
